FAERS Safety Report 10464965 (Version 5)
Quarter: 2016Q1

REPORT INFORMATION
  Report Type: Spontaneous
  Country: US (occurrence: US)
  Receive Date: 20140919
  Receipt Date: 20160208
  Transmission Date: 20160525
  Serious: Yes (Hospitalization, Other)
  Sender: FDA-Public Use
  Company Number: US-GLAXOSMITHKLINE-A1089204A

PATIENT
  Age: 73 Year
  Sex: Male

DRUGS (9)
  1. SULFASALAZINE. [Concomitant]
     Active Substance: SULFASALAZINE
  2. KLOR-CON [Concomitant]
     Active Substance: POTASSIUM CHLORIDE
  3. VFEND [Interacting]
     Active Substance: VORICONAZOLE
     Indication: FUNGAL INFECTION
  4. ADVAIR HFA [Interacting]
     Active Substance: FLUTICASONE PROPIONATE\SALMETEROL XINAFOATE
     Indication: CHRONIC OBSTRUCTIVE PULMONARY DISEASE
     Dosage: 1 DF, BID
     Dates: start: 1999, end: 201408
  5. FUROSEMIDE. [Concomitant]
     Active Substance: FUROSEMIDE
  6. VITAMIN C [Concomitant]
     Active Substance: ASCORBIC ACID
  7. ANORO ELLIPTA [Suspect]
     Active Substance: UMECLIDINIUM BROMIDE\VILANTEROL TRIFENATATE
     Indication: CHRONIC OBSTRUCTIVE PULMONARY DISEASE
     Dosage: UNK, U
     Route: 055
     Dates: start: 201407
  8. ADVAIR HFA [Interacting]
     Active Substance: FLUTICASONE PROPIONATE\SALMETEROL XINAFOATE
     Indication: EMPHYSEMA
     Dosage: UNK
     Route: 055
     Dates: end: 201408
  9. LISINOPRIL. [Concomitant]
     Active Substance: LISINOPRIL

REACTIONS (5)
  - Pulmonary mycosis [Recovered/Resolved]
  - Fungal infection [Recovered/Resolved]
  - Rheumatoid arthritis [Not Recovered/Not Resolved]
  - Pulmonary mass [Recovered/Resolved]
  - Labelled drug-drug interaction medication error [Not Recovered/Not Resolved]

NARRATIVE: CASE EVENT DATE: 201408
